FAERS Safety Report 7628460-3 (Version None)
Quarter: 2011Q3

REPORT INFORMATION
  Report Type: 
  Country: None (occurrence: None)
  Receive Date: 20110722
  Receipt Date: 20110719
  Transmission Date: 20111222
  Serious: No
  Sender: FDA-Public Use
  Company Number: US-PFIZER INC-2011164501

PATIENT
  Sex: Male
  Weight: 72 kg

DRUGS (3)
  1. LYRICA [Suspect]
     Indication: DIABETIC NEUROPATHY
     Dosage: 50 MG, DAILY
     Route: 048
     Dates: start: 20110101, end: 20110717
  2. WARFARIN SODIUM [Concomitant]
     Indication: ATRIAL FIBRILLATION
     Dosage: 6 MG, DAILY
     Route: 048
  3. NORVASC [Concomitant]
     Indication: HYPERTENSION
     Dosage: UNK
     Route: 048

REACTIONS (6)
  - DRY MOUTH [None]
  - DIZZINESS [None]
  - NASAL CONGESTION [None]
  - SWELLING FACE [None]
  - PAIN IN EXTREMITY [None]
  - SOMNOLENCE [None]
